FAERS Safety Report 4898044-9 (Version None)
Quarter: 2006Q1

REPORT INFORMATION
  Report Type: 
  Country: None (occurrence: None)
  Receive Date: 20060130
  Receipt Date: 20060116
  Transmission Date: 20060701
  Serious: Yes (Hospitalization)
  Sender: FDA-Public Use
  Company Number: WAES 0601GBR00061

PATIENT
  Age: 87 Year
  Sex: Male

DRUGS (10)
  1. ZOCOR [Suspect]
     Indication: HYPERCHOLESTEROLAEMIA
     Dosage: SEE IMAGE, PO
     Route: 048
     Dates: start: 20051013, end: 20051222
  2. ZOCOR [Suspect]
     Indication: HYPERCHOLESTEROLAEMIA
     Dosage: SEE IMAGE, PO
     Route: 048
     Dates: start: 20051223
  3. ASPIRIN [Concomitant]
  4. ATENOLOL [Concomitant]
  5. CLOPIDOGREL BISULFATE [Concomitant]
  6. LISINOPRIL [Concomitant]
  7. NIFEDIPINE [Concomitant]
  8. NITROGLYCERIN [Concomitant]
  9. RANITIDINE HCL [Concomitant]
  10. TEMAZEPAM [Concomitant]

REACTIONS (5)
  - ABDOMINAL PAIN UPPER [None]
  - ACUTE MYOCARDIAL INFARCTION [None]
  - GASTROINTESTINAL HAEMORRHAGE [None]
  - HYPERTENSION [None]
  - LEFT VENTRICULAR FAILURE [None]
